FAERS Safety Report 9515092 (Version 3)
Quarter: 2013Q3

REPORT INFORMATION
  Report Type: Spontaneous
  Country: DE (occurrence: DE)
  Receive Date: 20130911
  Receipt Date: 20130920
  Transmission Date: 20140515
  Serious: Yes (Hospitalization)
  Sender: FDA-Public Use
  Company Number: DE-JNJFOC-20130903150

PATIENT
  Age: 77 Year
  Sex: Female
  Weight: 86.17 kg

DRUGS (10)
  1. XARELTO [Suspect]
     Indication: CEREBROVASCULAR ACCIDENT PROPHYLAXIS
     Route: 048
     Dates: start: 201302, end: 20130723
  2. XARELTO [Suspect]
     Indication: ATRIAL FIBRILLATION
     Route: 048
     Dates: start: 201302, end: 20130723
  3. AMLODIPINE [Concomitant]
     Route: 065
  4. OLMESARTAN [Concomitant]
     Route: 065
  5. SIMVASTATIN [Concomitant]
     Route: 048
  6. BISOPROLOL [Concomitant]
     Route: 048
  7. CIPRALEX [Concomitant]
     Route: 065
  8. L-THYROXIN [Concomitant]
     Route: 065
  9. TORASEMID [Concomitant]
     Route: 065
  10. PANTOPRAZOLE [Concomitant]
     Route: 065

REACTIONS (2)
  - Cerebrovascular accident [Recovering/Resolving]
  - Drug ineffective [Unknown]
